FAERS Safety Report 9551465 (Version 1)
Quarter: 2013Q3

REPORT INFORMATION
  Report Type: Spontaneous
  Country: US (occurrence: None)
  Receive Date: 20130923
  Receipt Date: 20130923
  Transmission Date: 20140515
  Serious: No
  Sender: FDA-Public Use
  Company Number: None

PATIENT
  Age: 66 Year
  Sex: Male
  Weight: 89.7 kg

DRUGS (1)
  1. MOXIFLOXACIN [Suspect]
     Indication: UPPER RESPIRATORY TRACT INFECTION
     Route: 042
     Dates: start: 20130725, end: 20130725

REACTIONS (1)
  - Urticaria [None]
